FAERS Safety Report 15514384 (Version 1)
Quarter: 2018Q4

REPORT INFORMATION
  Report Type: Spontaneous
  Country: US (occurrence: US)
  Receive Date: 20181016
  Receipt Date: 20181016
  Transmission Date: 20190205
  Serious: No
  Sender: FDA-Public Use
  Company Number: US-AMGEN-USASP2018119927

PATIENT
  Age: 77 Year
  Sex: Male

DRUGS (1)
  1. NEULASTA [Suspect]
     Active Substance: PEGFILGRASTIM
     Indication: PROPHYLAXIS
     Dosage: 6 MG, UNK
     Route: 058
     Dates: start: 20180823

REACTIONS (4)
  - Intentional medical device removal by patient [Unknown]
  - Application site pain [Recovered/Resolved]
  - Application site discomfort [Unknown]
  - Application site irritation [Unknown]

NARRATIVE: CASE EVENT DATE: 20180823
